FAERS Safety Report 13738003 (Version 2)
Quarter: 2017Q3

REPORT INFORMATION
  Report Type: Other
  Country: FI (occurrence: FI)
  Receive Date: 20170710
  Receipt Date: 20170814
  Transmission Date: 20171127
  Serious: Yes (Life-Threatening, Hospitalization)
  Sender: FDA-Public Use
  Company Number: FI-CELLTRION HEALTHCARE JAPAN K.K.-2017FI008888

PATIENT

DRUGS (3)
  1. INFLECTRA [Suspect]
     Active Substance: INFLIXIMAB-DYYB
     Indication: CROHN^S DISEASE
     Dosage: UNK
     Route: 042
     Dates: start: 20170602, end: 20170602
  2. INFLECTRA [Suspect]
     Active Substance: INFLIXIMAB-DYYB
     Dosage: UNK
     Route: 042
     Dates: start: 20170619, end: 20170619
  3. MEDROL [Concomitant]
     Active Substance: METHYLPREDNISOLONE
     Dosage: 0.5 DF, UNK
     Route: 048
     Dates: start: 20170510, end: 20170626

REACTIONS (9)
  - Fatigue [Unknown]
  - Tremor [Recovered/Resolved]
  - Anxiety [Recovered/Resolved]
  - Erythema [Recovered/Resolved]
  - Musculoskeletal stiffness [Unknown]
  - Nasal congestion [Unknown]
  - Dyspnoea [Recovered/Resolved]
  - Anaphylactic reaction [Recovered/Resolved]
  - Vomiting [Recovered/Resolved]

NARRATIVE: CASE EVENT DATE: 20170612
